FAERS Safety Report 6570567-6 (Version None)
Quarter: 2010Q1

REPORT INFORMATION
  Report Type: 
  Country: None (occurrence: None)
  Receive Date: 20100204
  Receipt Date: 20100127
  Transmission Date: 20100710
  Serious: Yes (Hospitalization)
  Sender: FDA-Public Use
  Company Number: GXKR2010BE01245

PATIENT
  Age: 60 Year
  Sex: Female
  Weight: 90 kg

DRUGS (9)
  1. ACETAMINOPHEN [Suspect]
     Dosage: 1 G, QID (HAD BEEN RECEIVING FOR 10 DAYS BEFORE ICU ADMISSION)
     Route: 065
  2. PROPOFOL [Concomitant]
     Indication: INDUCTION OF ANAESTHESIA
  3. SEVOFLURANE [Concomitant]
     Indication: INDUCTION OF ANAESTHESIA
  4. SUFENTANIL [Concomitant]
     Indication: INDUCTION OF ANAESTHESIA
  5. ROCURONIUM [Concomitant]
     Indication: INDUCTION OF ANAESTHESIA
  6. DICLOFENAC [Concomitant]
     Indication: ANALGESIC THERAPY
  7. MORPHINE [Concomitant]
     Indication: ANALGESIC THERAPY
     Dosage: EVERY 48 H
  8. CARBAMAZEPINE [Concomitant]
     Indication: CONVULSION
  9. VALPROIC ACID [Concomitant]
     Indication: CONVULSION

REACTIONS (4)
  - ACUTE HEPATIC FAILURE [None]
  - COAGULOPATHY [None]
  - ENCEPHALOPATHY [None]
  - HEPATITIS [None]
